FAERS Safety Report 4463118-3 (Version None)
Quarter: 2004Q3

REPORT INFORMATION
  Report Type: 
  Country: None (occurrence: None)
  Receive Date: 20040928
  Receipt Date: 20040720
  Transmission Date: 20050211
  Serious: Yes (Other)
  Sender: FDA-Public Use
  Company Number: 2004-120501-NL

PATIENT
  Age: 33 Year
  Sex: Female
  Weight: 78.2 kg

DRUGS (3)
  1. NUVARING [Suspect]
     Indication: CONTRACEPTION
     Dosage: VAGINAL
     Route: 067
     Dates: start: 20030127
  2. NAPROXEN [Concomitant]
  3. IBUPROFEN [Concomitant]

REACTIONS (3)
  - MALIGNANT MELANOMA [None]
  - VAGINAL CONTRACEPTIVE DEVICE EXPELLED [None]
  - VAGINAL MYCOSIS [None]
